FAERS Safety Report 23746333 (Version 1)
Quarter: 2024Q2

REPORT INFORMATION
  Report Type: Spontaneous
  Country: US (occurrence: US)
  Receive Date: 20240416
  Receipt Date: 20240416
  Transmission Date: 20240715
  Serious: No
  Sender: FDA-Public Use
  Company Number: US-TEVA-VS-3177020

PATIENT
  Age: 78 Year
  Sex: Female

DRUGS (1)
  1. CARBOPLATIN [Suspect]
     Active Substance: CARBOPLATIN
     Indication: Product used for unknown indication
     Route: 065

REACTIONS (7)
  - Myalgia [Unknown]
  - Skin burning sensation [Unknown]
  - Cellulitis [Unknown]
  - Product prescribing issue [Unknown]
  - Thermal burn [Unknown]
  - Barrel chest [Unknown]
  - Restless legs syndrome [Unknown]

NARRATIVE: CASE EVENT DATE: 20240301
